FAERS Safety Report 13490089 (Version 1)
Quarter: 2017Q2

REPORT INFORMATION
  Report Type: Spontaneous
  Country: NL (occurrence: NL)
  Receive Date: 20170427
  Receipt Date: 20170427
  Transmission Date: 20170830
  Serious: Yes (Other)
  Sender: FDA-Public Use
  Company Number: NL-TEVA-763884ROM

PATIENT
  Sex: Female

DRUGS (1)
  1. BECLOMETAASON 400 CYCLOCAPS [Suspect]
     Active Substance: BECLOMETHASONE DIPROPIONATE

REACTIONS (2)
  - Product physical issue [Unknown]
  - Foreign body aspiration [Unknown]
